FAERS Safety Report 25992732 (Version 1)
Quarter: 2025Q4

REPORT INFORMATION
  Report Type: Spontaneous
  Country: US (occurrence: US)
  Receive Date: 20251103
  Receipt Date: 20251103
  Transmission Date: 20260118
  Serious: Yes (Other)
  Sender: KALVISTA PHARMACEUTICALS
  Company Number: US-KP-00112

PATIENT
  Age: 37 Year
  Sex: Female

DRUGS (1)
  1. EKTERLY [Suspect]
     Active Substance: SEBETRALSTAT
     Indication: Hereditary angioedema
     Dosage: TIME INTERVAL: AS NECESSARY
     Dates: start: 20250918

REACTIONS (2)
  - Lung perforation [Unknown]
  - Rib fracture [Unknown]
